FAERS Safety Report 8782851 (Version 5)
Quarter: 2013Q1

REPORT INFORMATION
  Report Type: Report from Study
  Country: JP (occurrence: JP)
  Receive Date: 20120913
  Receipt Date: 20130213
  Transmission Date: 20140127
  Serious: Yes (Other)
  Sender: FDA-Public Use
  Company Number: JP-GLAXOSMITHKLINE-B0829447A

PATIENT
  Age: 62 Year
  Sex: Male
  Weight: 51 kg

DRUGS (5)
  1. SAMTIREL [Suspect]
     Indication: ANTIFUNGAL PROPHYLAXIS
     Dosage: 1500MG PER DAY
     Route: 048
     Dates: start: 20120731
  2. PREDONINE [Concomitant]
     Indication: MICROSCOPIC POLYANGIITIS
     Route: 048
     Dates: start: 20120524
  3. ENDOXAN [Concomitant]
     Indication: MICROSCOPIC POLYANGIITIS
     Dosage: 50MG PER DAY
     Route: 048
     Dates: start: 20120731
  4. TAKEPRON [Concomitant]
     Dosage: 15MG PER DAY
     Route: 048
     Dates: start: 20120524, end: 20120611
  5. GASTER D [Concomitant]
     Dosage: 20MG TWICE PER DAY
     Route: 048
     Dates: start: 20120612

REACTIONS (1)
  - Deafness [Recovering/Resolving]
